FAERS Safety Report 14637595 (Version 2)
Quarter: 2018Q2

REPORT INFORMATION
  Report Type: Spontaneous
  Country: DE (occurrence: DE)
  Receive Date: 20180314
  Receipt Date: 20180405
  Transmission Date: 20180711
  Serious: Yes (Other)
  Sender: FDA-Public Use
  Company Number: PHHY2017DE201657

PATIENT
  Age: 31 Year
  Sex: Female
  Weight: 54 kg

DRUGS (5)
  1. DIMETINDENE [Concomitant]
     Active Substance: DIMETHINDENE
     Indication: PROPHYLAXIS
     Dosage: 30 MIN BEFORE PACLITAXEL
     Route: 042
  2. PACLITAXEL. [Suspect]
     Active Substance: PACLITAXEL
     Indication: BREAST CANCER
     Dosage: 131.2 MG, CYCLIC
     Route: 042
     Dates: start: 20170410
  3. PACLITAXEL. [Suspect]
     Active Substance: PACLITAXEL
     Dosage: 131.2 MG, (2 CYCLE MONO WEEKLYSTRENGTH: 300 MG/50 ML)
     Route: 042
     Dates: start: 20170418
  4. RANITIDIN [Concomitant]
     Active Substance: RANITIDINE HYDROCHLORIDE
     Indication: PROPHYLAXIS
     Dosage: 30 MIN BEFORE PACLITAXEL
     Route: 042
  5. DEXAMETASON [Concomitant]
     Active Substance: DEXAMETHASONE
     Indication: PROPHYLAXIS
     Dosage: 30 MIN BEFORE PACLITAXEL
     Route: 042

REACTIONS (4)
  - Respiratory distress [Recovered/Resolved]
  - Feeling hot [Recovered/Resolved]
  - Flushing [Recovered/Resolved]
  - Erythema [Recovered/Resolved]

NARRATIVE: CASE EVENT DATE: 20170418
